FAERS Safety Report 14801465 (Version 1)
Quarter: 2018Q2

REPORT INFORMATION
  Report Type: Spontaneous
  Country: US (occurrence: US)
  Receive Date: 20180416
  Receipt Date: 20180416
  Transmission Date: 20180711
  Serious: No
  Sender: FDA-Public Use
  Company Number: None

PATIENT
  Age: 60 Year
  Sex: Female
  Weight: 89.55 kg

DRUGS (5)
  1. IBUPROFEN 800 MG [Concomitant]
     Active Substance: IBUPROFEN
  2. GABAPENTIN 100 MG [Concomitant]
     Active Substance: GABAPENTIN
  3. HARVONI [Suspect]
     Active Substance: LEDIPASVIR\SOFOSBUVIR
     Indication: CHRONIC HEPATITIS C
     Route: 048
     Dates: start: 20180321
  4. BUPROPION HCL XL 150 MG [Concomitant]
     Active Substance: BUPROPION HYDROCHLORIDE
  5. TRAZODONE [Concomitant]
     Active Substance: TRAZODONE HYDROCHLORIDE

REACTIONS (2)
  - Middle insomnia [None]
  - Vibratory sense increased [None]

NARRATIVE: CASE EVENT DATE: 20180414
